FAERS Safety Report 16287488 (Version 1)
Quarter: 2019Q2

REPORT INFORMATION
  Report Type: Spontaneous
  Country: US (occurrence: US)
  Receive Date: 20190402
  Receipt Date: 20190402
  Transmission Date: 20190711
  Serious: No
  Sender: FDA-Public Use
  Company Number: None

PATIENT
  Age: 52 Year
  Sex: Female
  Weight: 88.45 kg

DRUGS (2)
  1. ENBREL [Suspect]
     Active Substance: ETANERCEPT
     Indication: PSORIASIS
     Dosage: 50 MG SC TWO TIMES A WEEK 72-96 HOURS APART FOR 3 MONTHS AS DIRECTED
     Route: 058
     Dates: start: 201807
  2. ENBREL [Suspect]
     Active Substance: ETANERCEPT
     Indication: PSORIATIC ARTHROPATHY
     Dosage: 50 MG SC TWO TIMES A WEEK 72-96 HOURS APART FOR 3 MONTHS AS DIRECTED
     Route: 058
     Dates: start: 201807

REACTIONS (2)
  - Heart rate decreased [None]
  - Dyspnoea [None]
